FAERS Safety Report 6949686-8 (Version None)
Quarter: 2010Q3

REPORT INFORMATION
  Report Type: 
  Country: None (occurrence: None)
  Receive Date: 20100828
  Receipt Date: 20100105
  Transmission Date: 20110219
  Serious: No
  Sender: FDA-Public Use
  Company Number: US-ABBOTT-10P-163-0618464-00

PATIENT
  Sex: Male
  Weight: 78.088 kg

DRUGS (9)
  1. NIASPAN [Suspect]
     Indication: HIGH DENSITY LIPOPROTEIN DECREASED
     Route: 048
     Dates: start: 20091202
  2. METHOTREXATE [Concomitant]
     Indication: ARTHRITIS REACTIVE
     Route: 058
  3. PREDNISONE [Concomitant]
     Indication: ARTHRITIS REACTIVE
     Route: 048
  4. LIPITOR [Concomitant]
     Indication: BLOOD CHOLESTEROL INCREASED
     Route: 048
  5. FOLIC ACID [Concomitant]
     Indication: VITAMIN SUPPLEMENTATION
     Route: 048
  6. CELEXA [Concomitant]
     Indication: DEPRESSION
     Route: 048
  7. WARFARIN SODIUM [Concomitant]
     Indication: FACTOR V INHIBITION
     Dosage: 4 ALT W/3 QOD
     Route: 048
  8. ADVAIR DISKUS 100/50 [Concomitant]
     Indication: ASTHMA
     Dosage: 250/50
     Route: 055
  9. XANAX [Concomitant]
     Indication: PANIC ATTACK
     Route: 048

REACTIONS (7)
  - DIZZINESS [None]
  - FLUSHING [None]
  - INTERNATIONAL NORMALISED RATIO INCREASED [None]
  - PANIC ATTACK [None]
  - PARAESTHESIA [None]
  - PRURITUS [None]
  - RASH [None]
